FAERS Safety Report 17661804 (Version 1)
Quarter: 2020Q2

REPORT INFORMATION
  Report Type: Spontaneous
  Country: US (occurrence: US)
  Receive Date: 20200413
  Receipt Date: 20200413
  Transmission Date: 20200713
  Serious: Yes (Hospitalization)
  Sender: FDA-Public Use
  Company Number: US-PERRIGO-20US004928

PATIENT
  Age: 46 Year
  Sex: Female

DRUGS (5)
  1. PREVACID 24 HR [Suspect]
     Active Substance: LANSOPRAZOLE
     Indication: GASTROOESOPHAGEAL REFLUX DISEASE
     Dosage: UNK
     Route: 048
     Dates: start: 200912, end: 201401
  2. ESOMEPRAZOLE. [Suspect]
     Active Substance: ESOMEPRAZOLE MAGNESIUM
     Indication: GASTROOESOPHAGEAL REFLUX DISEASE
     Dosage: 40 MG, QAM
     Route: 048
     Dates: start: 20100704, end: 20140528
  3. PRILOSEC [Suspect]
     Active Substance: OMEPRAZOLE MAGNESIUM
     Indication: GASTROOESOPHAGEAL REFLUX DISEASE
     Dosage: 20 MG, QD
     Route: 048
     Dates: start: 200905, end: 201007
  4. NEXIUM [Suspect]
     Active Substance: ESOMEPRAZOLE MAGNESIUM
     Indication: GASTROOESOPHAGEAL REFLUX DISEASE
     Dosage: 40 MG, QD
     Route: 048
     Dates: start: 20100704, end: 20140328
  5. PANTOPRAZOLE [Suspect]
     Active Substance: PANTOPRAZOLE
     Indication: GASTROOESOPHAGEAL REFLUX DISEASE
     Dosage: 40 MG, QD
     Route: 048
     Dates: start: 20140513, end: 20140528

REACTIONS (29)
  - Nephrolithiasis [Recovered/Resolved]
  - Urinary retention [Unknown]
  - Ureteric obstruction [Unknown]
  - Glomerular vascular disorder [Unknown]
  - Renal failure [Not Recovered/Not Resolved]
  - Nephrostomy [Recovered/Resolved with Sequelae]
  - Chronic kidney disease [Not Recovered/Not Resolved]
  - Hydronephrosis [Unknown]
  - Renal impairment [Unknown]
  - Kidney infection [Unknown]
  - Dysuria [Unknown]
  - Renal disorder [Unknown]
  - Obstructive nephropathy [Unknown]
  - Tubulointerstitial nephritis [Unknown]
  - Kidney fibrosis [Unknown]
  - Pollakiuria [Unknown]
  - Ureteric stenosis [Unknown]
  - Nephrectomy [Recovered/Resolved with Sequelae]
  - Single functional kidney [Not Recovered/Not Resolved]
  - Calculus urinary [Unknown]
  - Chromaturia [Unknown]
  - Renal colic [Unknown]
  - Ureterolithiasis [Recovered/Resolved with Sequelae]
  - Hypertensive nephropathy [Recovered/Resolved with Sequelae]
  - Hydroureter [Unknown]
  - Nephropathy [Not Recovered/Not Resolved]
  - Renal tubular atrophy [Unknown]
  - Haematuria [Unknown]
  - Renal atrophy [Unknown]

NARRATIVE: CASE EVENT DATE: 20091219
